FAERS Safety Report 19832385 (Version 1)
Quarter: 2021Q3

REPORT INFORMATION
  Report Type: Spontaneous
  Country: US (occurrence: US)
  Receive Date: 20210915
  Receipt Date: 20210915
  Transmission Date: 20211014
  Serious: Yes (Other)
  Sender: FDA-Public Use
  Company Number: None

PATIENT
  Age: 38 Year
  Sex: Female
  Weight: 65.25 kg

DRUGS (3)
  1. LAMOTRIGINE 50MG [Suspect]
     Active Substance: LAMOTRIGINE
     Indication: BIPOLAR DISORDER
     Dosage: ?          QUANTITY:1 CAPSULE(S);?
     Route: 048
     Dates: start: 20210821, end: 20210914
  2. BUPROPION 150MG [Concomitant]
     Active Substance: BUPROPION HYDROCHLORIDE
  3. NALTREXONE 50MG [Concomitant]
     Active Substance: NALTREXONE

REACTIONS (3)
  - Palpitations [None]
  - Arrhythmia [None]
  - Bradycardia [None]

NARRATIVE: CASE EVENT DATE: 20210909
